FAERS Safety Report 16499723 (Version 1)
Quarter: 2019Q3

REPORT INFORMATION
  Report Type: Report from Study
  Country: ZA (occurrence: ZA)
  Receive Date: 20190701
  Receipt Date: 20190701
  Transmission Date: 20191004
  Serious: Yes (Hospitalization)
  Sender: FDA-Public Use
  Company Number: ZA-SA-2019SA051706

PATIENT
  Age: 72 Year
  Sex: Male

DRUGS (9)
  1. PHARMAPRESS [BRIMONIDINE TARTRATE] [Concomitant]
     Dosage: 10 MG, QD, BEFORE SUPPER
     Dates: start: 20190211
  2. TOUJEO [Suspect]
     Active Substance: INSULIN GLARGINE
     Dosage: 15 U, QD, BEFORE SUPPER, 1.5 ML, 300IU/1ML
     Route: 065
     Dates: start: 20190211
  3. NO STUDY DRUG GIVEN [Suspect]
     Active Substance: INVESTIGATIONAL PRODUCT
  4. METFORMIN [Concomitant]
     Active Substance: METFORMIN HYDROCHLORIDE
     Dosage: 1 G, BID, 1 G AFTER BREAKFAST AND 1 G AFTER SUPPER
     Dates: start: 20190211
  5. ECOTRIN [Concomitant]
     Active Substance: ASPIRIN
     Dosage: 81 MG, Q3W
     Dates: start: 20190211
  6. HEXARONE [Concomitant]
     Active Substance: AMIODARONE
     Dosage: 200 MG, QD, BEFORE SUPPER
     Dates: start: 20190211
  7. NUZAK [Concomitant]
     Active Substance: FLUOXETINE HYDROCHLORIDE
     Dosage: 20 MG, QD, BEFORE SUPPER
     Dates: start: 20190211
  8. VERAHEXAL [Concomitant]
     Active Substance: VERAPAMIL HYDROCHLORIDE
     Dosage: 240 MG, QD, AFTER SUPPER
     Dates: start: 20190211
  9. DIAGLUCIDE [Concomitant]
     Active Substance: GLICLAZIDE
     Dosage: 60 MG, QD, BEFORE BREAKFAST
     Dates: start: 20190211

REACTIONS (6)
  - Glycosylated haemoglobin increased [Unknown]
  - Fall [Unknown]
  - Balance disorder [Not Recovered/Not Resolved]
  - Oedema peripheral [Unknown]
  - Wound [Not Recovered/Not Resolved]
  - Influenza [Not Recovered/Not Resolved]

NARRATIVE: CASE EVENT DATE: 20190220
